FAERS Safety Report 23186662 (Version 1)
Quarter: 2023Q4

REPORT INFORMATION
  Report Type: Spontaneous
  Country: US (occurrence: None)
  Receive Date: 20231115
  Receipt Date: 20231115
  Transmission Date: 20240109
  Serious: Yes (Hospitalization)
  Sender: FDA-Public Use
  Company Number: None

PATIENT
  Age: 76 Year
  Sex: Female
  Weight: 83.4 kg

DRUGS (1)
  1. BELATACEPT [Suspect]
     Active Substance: BELATACEPT
     Indication: Renal transplant
     Dates: start: 20221031, end: 20231110

REACTIONS (17)
  - Acute kidney injury [None]
  - Leukopenia [None]
  - Renal mass [None]
  - Complications of transplanted kidney [None]
  - Anaemia [None]
  - Hydronephrosis [None]
  - Kidney infection [None]
  - Kidney transplant rejection [None]
  - Drug resistance [None]
  - Escherichia infection [None]
  - Enterococcal infection [None]
  - Urinary tract infection [None]
  - Cytomegalovirus infection [None]
  - Epstein-Barr virus infection [None]
  - Neutropenia [None]
  - Lymphoproliferative disorder [None]
  - Renal neoplasm [None]

NARRATIVE: CASE EVENT DATE: 20231103
